FAERS Safety Report 13621218 (Version 1)
Quarter: 2017Q2

REPORT INFORMATION
  Report Type: Spontaneous
  Country: US (occurrence: US)
  Receive Date: 20170607
  Receipt Date: 20170607
  Transmission Date: 20170830
  Serious: Yes (Hospitalization)
  Sender: FDA-Public Use
  Company Number: US-ACCORD-052381

PATIENT
  Age: 10 Year
  Sex: Male
  Weight: 33.1 kg

DRUGS (3)
  1. ARIPIPRAZOLE. [Suspect]
     Active Substance: ARIPIPRAZOLE
     Indication: AUTISM SPECTRUM DISORDER
     Dosage: NIGHTLY AT BEDTIME
  2. OXCARBAZEPINE. [Interacting]
     Active Substance: OXCARBAZEPINE
     Indication: AUTISM SPECTRUM DISORDER
     Dosage: 600 MG TWICE DAILY
  3. GUANFACINE/GUANFACINE HYDROCHLORIDE [Concomitant]
     Indication: AUTISM SPECTRUM DISORDER
     Dosage: 1 MG 4 TIMES DAILY

REACTIONS (2)
  - Drug ineffective [Unknown]
  - Drug interaction [Unknown]
